FAERS Safety Report 8618054-5 (Version None)
Quarter: 2012Q3

REPORT INFORMATION
  Report Type: 
  Country: None (occurrence: None)
  Receive Date: 20120824
  Receipt Date: 20120328
  Transmission Date: 20120928
  Serious: No
  Sender: FDA-Public Use
  Company Number: US-ASTRAZENECA-2012SE09095

PATIENT
  Sex: Female

DRUGS (2)
  1. ALBUTEROL [Concomitant]
  2. SYMBICORT [Suspect]
     Dosage: 160/4.5 MCG  2 PUFFS, BID
     Route: 055

REACTIONS (2)
  - DYSPHONIA [None]
  - DRUG DOSE OMISSION [None]
